FAERS Safety Report 6639064-3 (Version None)
Quarter: 2010Q1

REPORT INFORMATION
  Report Type: 
  Country: None (occurrence: None)
  Receive Date: 20100312
  Receipt Date: 20100301
  Transmission Date: 20100710
  Serious: Yes (Other)
  Sender: FDA-Public Use
  Company Number: 1000010546

PATIENT
  Age: 97 Year
  Sex: Male

DRUGS (2)
  1. MEMANTINE HCL [Suspect]
     Dosage: 5 MG (5 MG,  1 IN 1 D),ORAL
     Route: 048
  2. MEMANTINE HCL [Suspect]
     Dosage: 10 MG (5 MG, 2 IN 1 D), ORAL
     Route: 048

REACTIONS (3)
  - SEDATION [None]
  - SOMNOLENCE [None]
  - TRANSIENT ISCHAEMIC ATTACK [None]
